FAERS Safety Report 9350141 (Version 1)
Quarter: 2013Q2

REPORT INFORMATION
  Report Type: Spontaneous
  Country: US (occurrence: US)
  Receive Date: 20130617
  Receipt Date: 20130617
  Transmission Date: 20140414
  Serious: No
  Sender: FDA-Public Use
  Company Number: US-009507513-1306USA006106

PATIENT
  Sex: Female

DRUGS (1)
  1. SINGULAIR [Suspect]
     Dosage: UNK, QD

REACTIONS (4)
  - Hypersensitivity [Unknown]
  - Ear discomfort [Unknown]
  - Nasopharyngitis [Unknown]
  - Fatigue [Unknown]
